FAERS Safety Report 9409313 (Version 2)
Quarter: 2013Q4

REPORT INFORMATION
  Report Type: Spontaneous
  Country: US (occurrence: US)
  Receive Date: 20130719
  Receipt Date: 20131030
  Transmission Date: 20140711
  Serious: Yes (Other)
  Sender: FDA-Public Use
  Company Number: US-BAYER-2013-085168

PATIENT
  Age: 33 Year
  Sex: Female

DRUGS (1)
  1. MIRENA [Suspect]
     Dosage: 20 MCG/24HR, CONT
     Route: 015
     Dates: start: 20100708, end: 20121023

REACTIONS (12)
  - Device dislocation [None]
  - Device dislocation [None]
  - Abdominal distension [None]
  - Abdominal discomfort [None]
  - Pain [None]
  - Injury [None]
  - Abdominal pain upper [None]
  - Flatulence [None]
  - Depression [None]
  - Anxiety [None]
  - Chest pain [None]
  - Migraine [None]
